FAERS Safety Report 5918084-8 (Version None)
Quarter: 2008Q4

REPORT INFORMATION
  Report Type: 
  Country: None (occurrence: None)
  Receive Date: 20081009
  Receipt Date: 20080926
  Transmission Date: 20090506
  Serious: Yes (Hospitalization)
  Sender: FDA-Public Use
  Company Number: 2008S1017561

PATIENT
  Sex: Female

DRUGS (3)
  1. ENALAPRIL MALEATE [Suspect]
     Indication: HYPERTENSION
     Dosage: 20 MG; ORAL
     Route: 048
     Dates: start: 20010722, end: 20080105
  2. ASPIRIN [Concomitant]
  3. LACTULOSE [Concomitant]

REACTIONS (1)
  - PANCYTOPENIA [None]
